FAERS Safety Report 10233970 (Version 2)
Quarter: 2014Q2

REPORT INFORMATION
  Report Type: Report from Study
  Country: AR (occurrence: AR)
  Receive Date: 20140612
  Receipt Date: 20140612
  Transmission Date: 20141212
  Serious: Yes (Hospitalization, Other)
  Sender: FDA-Public Use
  Company Number: PHHY2013AR012956

PATIENT
  Age: 42 Year
  Sex: Female

DRUGS (5)
  1. GILENYA [Suspect]
     Indication: MULTIPLE SCLEROSIS
     Dosage: 1 DF, QD
     Route: 048
     Dates: start: 201209
  2. GILENYA [Suspect]
     Dosage: 1 DF, QOD
     Route: 048
     Dates: start: 20121231, end: 20130108
  3. GILENYA [Suspect]
     Dosage: 0.5 MG, UNK
     Route: 048
     Dates: start: 201304, end: 201304
  4. AMLODIPINE [Concomitant]
     Indication: HYPERTENSION
     Dosage: 10 MG, QD
     Route: 048
  5. ALPLAX [Concomitant]
     Dosage: 1 MG, UNK
     Route: 048

REACTIONS (9)
  - Hemiplegia [Recovered/Resolved]
  - Paraesthesia [Recovered/Resolved]
  - Multiple sclerosis [Recovered/Resolved with Sequelae]
  - Limb discomfort [Unknown]
  - Feeling hot [Unknown]
  - Muscle rigidity [Recovering/Resolving]
  - Fatigue [Unknown]
  - Eating disorder [Unknown]
  - Somnolence [Unknown]
